FAERS Safety Report 15308405 (Version 1)
Quarter: 2018Q3

REPORT INFORMATION
  Report Type: Spontaneous
  Country: RU (occurrence: RU)
  Receive Date: 20180822
  Receipt Date: 20180822
  Transmission Date: 20181010
  Serious: Yes (Other)
  Sender: FDA-Public Use
  Company Number: RU-MERCK KGAA-2054092

PATIENT
  Sex: Female

DRUGS (8)
  1. UTROGESTAN [Concomitant]
     Active Substance: PROGESTERONE
  2. CHORIOGONADOTROPIN ALFA [Suspect]
     Active Substance: CHORIOGONADOTROPIN ALFA
  3. PROGESTERONE. [Concomitant]
     Active Substance: PROGESTERONE
  4. NOVOTHYROX [Suspect]
     Active Substance: LEVOTHYROXINE SODIUM
     Indication: BLOOD THYROID STIMULATING HORMONE INCREASED
  5. DUPHASTON [Concomitant]
     Active Substance: DYDROGESTERONE
  6. CLEXANE [Concomitant]
     Active Substance: ENOXAPARIN SODIUM
  7. DIVIGEL [Concomitant]
     Active Substance: ESTRADIOL
  8. METYPRED [Concomitant]
     Active Substance: METHYLPREDNISOLONE

REACTIONS (7)
  - Ovarian hyperstimulation syndrome [None]
  - Maternal exposure during pregnancy [None]
  - Lid sulcus deepened [None]
  - Abdominal pain upper [None]
  - Intentional product misuse [None]
  - Decreased embryo viability [None]
  - Weight decreased [None]

NARRATIVE: CASE EVENT DATE: 2017
